FAERS Safety Report 9211061 (Version 1)
Quarter: 2013Q2

REPORT INFORMATION
  Report Type: Spontaneous
  Country: GB (occurrence: GB)
  Receive Date: 20130404
  Receipt Date: 20130404
  Transmission Date: 20140414
  Serious: Yes (Death)
  Sender: FDA-Public Use
  Company Number: GB-MPIJNJ-2012-05887

PATIENT
  Sex: 0

DRUGS (1)
  1. VELCADE [Suspect]
     Indication: PLASMA CELL MYELOMA
     Dosage: 1.1 MG, UNK
     Route: 058
     Dates: start: 20120419, end: 20120423

REACTIONS (2)
  - Lower respiratory tract infection [Fatal]
  - Plasma cell myeloma [Fatal]
